FAERS Safety Report 23880922 (Version 1)
Quarter: 2024Q2

REPORT INFORMATION
  Report Type: Spontaneous
  Country: US (occurrence: US)
  Receive Date: 20240521
  Receipt Date: 20240521
  Transmission Date: 20240715
  Serious: Yes (Other)
  Sender: FDA-Public Use
  Company Number: US-Stemline Therapeutics, Inc.-2024ST003027

PATIENT
  Age: 58 Year
  Sex: Female

DRUGS (2)
  1. ORSERDU [Suspect]
     Active Substance: ELACESTRANT
     Indication: Product used for unknown indication
     Route: 048
     Dates: start: 202402
  2. ORSERDU [Suspect]
     Active Substance: ELACESTRANT
     Route: 048

REACTIONS (3)
  - Foreign body in throat [Recovering/Resolving]
  - Product size issue [Recovering/Resolving]
  - Throat irritation [Recovering/Resolving]
